FAERS Safety Report 4590813-8 (Version None)
Quarter: 2005Q1

REPORT INFORMATION
  Report Type: 
  Country: None (occurrence: None)
  Receive Date: 20050222
  Receipt Date: 20050222
  Transmission Date: 20050727
  Serious: No
  Sender: FDA-Public Use
  Company Number: None

PATIENT
  Sex: Female
  Weight: 118.7 kg

DRUGS (1)
  1. ZOMETA [Suspect]
     Dosage: 4 MG IV X 1
     Route: 042
     Dates: start: 20050126

REACTIONS (13)
  - ARTHROPATHY [None]
  - BLOOD CREATININE DECREASED [None]
  - CONJUNCTIVAL HAEMORRHAGE [None]
  - ERYTHEMA [None]
  - INFLUENZA LIKE ILLNESS [None]
  - MYALGIA [None]
  - NAUSEA [None]
  - OEDEMA PERIPHERAL [None]
  - PAIN [None]
  - PARAESTHESIA [None]
  - PHLEBITIS [None]
  - PYREXIA [None]
  - SWELLING [None]
